FAERS Safety Report 16914938 (Version 1)
Quarter: 2019Q4

REPORT INFORMATION
  Report Type: Spontaneous
  Country: US (occurrence: US)
  Receive Date: 20190821
  Receipt Date: 20190821
  Transmission Date: 20200122
  Serious: Yes (Life-Threatening, Other)
  Sender: FDA-Public Use
  Company Number: None

PATIENT
  Age: 60 Year
  Sex: Male
  Weight: 114.7 kg

DRUGS (1)
  1. PROTAMINE [Suspect]
     Active Substance: PROTAMINE
     Indication: PROCOAGULANT THERAPY
     Route: 042
     Dates: start: 20190802

REACTIONS (1)
  - Procedural haemorrhage [None]

NARRATIVE: CASE EVENT DATE: 20190802
